FAERS Safety Report 7185968-5 (Version None)
Quarter: 2010Q4

REPORT INFORMATION
  Report Type: 
  Country: None (occurrence: None)
  Receive Date: 20101123
  Receipt Date: 20100818
  Transmission Date: 20110411
  Serious: No
  Sender: FDA-Public Use
  Company Number: 017430

PATIENT
  Age: 42 Year
  Sex: Female
  Weight: 43.1 kg

DRUGS (1)
  1. CIMZIA [Suspect]
     Indication: CROHN'S DISEASE
     Dosage: (SUBCUTANEOUS)
     Route: 058

REACTIONS (3)
  - ORAL PAIN [None]
  - OROPHARYNGEAL PAIN [None]
  - VULVOVAGINAL PAIN [None]
